FAERS Safety Report 13941269 (Version 5)
Quarter: 2018Q2

REPORT INFORMATION
  Report Type: Spontaneous
  Country: US (occurrence: US)
  Receive Date: 20170906
  Receipt Date: 20180515
  Transmission Date: 20180711
  Serious: Yes (Hospitalization)
  Sender: FDA-Public Use
  Company Number: US-DSJP-DSU-2017-135117

PATIENT

DRUGS (2)
  1. BENICAR HCT [Suspect]
     Active Substance: HYDROCHLOROTHIAZIDE\OLMESARTAN MEDOXOMIL
     Indication: ESSENTIAL HYPERTENSION
     Dosage: 40/25 MG, QD
     Route: 048
     Dates: end: 20140314
  2. BENICAR [Suspect]
     Active Substance: OLMESARTAN MEDOXOMIL
     Indication: ESSENTIAL HYPERTENSION
     Dosage: 40 MG, QD
     Dates: start: 20140314, end: 20140314

REACTIONS (7)
  - Weight decreased [Recovered/Resolved]
  - Stress urinary incontinence [Unknown]
  - Nausea [Recovered/Resolved]
  - Abdominal pain [Recovered/Resolved]
  - Vomiting [Recovered/Resolved]
  - Pollakiuria [Unknown]
  - Diarrhoea [Recovered/Resolved]

NARRATIVE: CASE EVENT DATE: 20071016
